FAERS Safety Report 23052027 (Version 2)
Quarter: 2023Q4

REPORT INFORMATION
  Report Type: Report from Study
  Country: JP (occurrence: JP)
  Receive Date: 20231010
  Receipt Date: 20231027
  Transmission Date: 20240110
  Serious: Yes (Hospitalization, Other)
  Sender: FDA-Public Use
  Company Number: JP-ONO-2023JP024439

PATIENT
  Age: 42 Year
  Sex: Female
  Weight: 47.6 kg

DRUGS (18)
  1. BRAFTOVI [Suspect]
     Active Substance: ENCORAFENIB
     Indication: Colon cancer
     Dosage: 225 MG, EVERYDAY
     Route: 048
     Dates: start: 20220831, end: 20220904
  2. BRAFTOVI [Suspect]
     Active Substance: ENCORAFENIB
     Dosage: 300 MG, EVERYDAY
     Route: 048
     Dates: start: 20220905, end: 20220911
  3. BRAFTOVI [Suspect]
     Active Substance: ENCORAFENIB
     Dosage: 225 MG, EVERYDAY
     Route: 048
     Dates: start: 20220912, end: 20221004
  4. BRAFTOVI [Suspect]
     Active Substance: ENCORAFENIB
     Dosage: 150 MG, EVERYDAY
     Route: 048
     Dates: start: 20221005, end: 20221011
  5. BRAFTOVI [Suspect]
     Active Substance: ENCORAFENIB
     Dosage: 225 MG, EVERYDAY
     Route: 048
     Dates: start: 20221012, end: 20221208
  6. BRAFTOVI [Suspect]
     Active Substance: ENCORAFENIB
     Dosage: 300 MG, EVERYDAY
     Route: 048
     Dates: start: 20221209, end: 20230202
  7. BRAFTOVI [Suspect]
     Active Substance: ENCORAFENIB
     Dosage: 225 MG, EVERYDAY
     Route: 048
     Dates: start: 20230210, end: 20230213
  8. BRAFTOVI [Suspect]
     Active Substance: ENCORAFENIB
     Dosage: 300 MG, EVERYDAY
     Route: 048
     Dates: start: 20230214, end: 20230304
  9. BRAFTOVI [Suspect]
     Active Substance: ENCORAFENIB
     Dosage: 300 MG, EVERYDAY
     Route: 048
     Dates: start: 20230307, end: 20230315
  10. BRAFTOVI [Suspect]
     Active Substance: ENCORAFENIB
     Dosage: 300 MG, EVERYDAY
     Route: 048
     Dates: start: 20230323, end: 20230815
  11. MEKTOVI [Suspect]
     Active Substance: BINIMETINIB
     Indication: Colon cancer
     Dosage: 60 MG, DAILY
     Route: 048
     Dates: start: 20220831, end: 20220831
  12. MEKTOVI [Suspect]
     Active Substance: BINIMETINIB
     Dosage: 30 MG
     Route: 048
     Dates: start: 20220901, end: 20220901
  13. MEKTOVI [Suspect]
     Active Substance: BINIMETINIB
     Dosage: 15 MG, DAILY
     Route: 048
     Dates: start: 20220916, end: 20230202
  14. MEKTOVI [Suspect]
     Active Substance: BINIMETINIB
     Dosage: 15 MG, DAILY
     Route: 048
     Dates: start: 20230210, end: 20230213
  15. MEKTOVI [Suspect]
     Active Substance: BINIMETINIB
     Dosage: 30 MG, DAILY
     Route: 048
     Dates: start: 20230214, end: 20230304
  16. MEKTOVI [Suspect]
     Active Substance: BINIMETINIB
     Dosage: 30 MG, DAILY
     Route: 048
     Dates: start: 20230307, end: 20230315
  17. MEKTOVI [Suspect]
     Active Substance: BINIMETINIB
     Dosage: 30 MG, DAILY
     Route: 048
     Dates: start: 20230323, end: 20230815
  18. CETUXIMAB [Concomitant]
     Active Substance: CETUXIMAB
     Indication: Colon cancer
     Dosage: 400 MG/M2
     Route: 065
     Dates: start: 20220831, end: 20230802

REACTIONS (16)
  - Serous retinal detachment [Recovered/Resolved]
  - Large intestinal obstruction [Recovered/Resolved]
  - Device related infection [Recovered/Resolved]
  - Device related infection [Recovered/Resolved]
  - Device related infection [Recovered/Resolved]
  - Small intestinal haemorrhage [Recovered/Resolved]
  - Pancreatic enzymes increased [Recovered/Resolved]
  - Palmar-plantar erythrodysaesthesia syndrome [Recovered/Resolved]
  - Myalgia [Recovered/Resolved]
  - Melanocytic naevus [Recovered/Resolved]
  - Blood creatinine increased [Recovered/Resolved]
  - Anaemia [Not Recovered/Not Resolved]
  - Hypoalbuminaemia [Recovered/Resolved]
  - Neoplasm progression [Recovered/Resolved]
  - Underdose [Unknown]
  - Inappropriate schedule of product administration [Unknown]

NARRATIVE: CASE EVENT DATE: 20220831
